FAERS Safety Report 16648246 (Version 3)
Quarter: 2019Q3

REPORT INFORMATION
  Report Type: Report from Study
  Country: ZA (occurrence: ZA)
  Receive Date: 20190730
  Receipt Date: 20190815
  Transmission Date: 20191004
  Serious: Yes (Disabling)
  Sender: FDA-Public Use
  Company Number: ZA-SA-2019SA187740

PATIENT
  Age: 60 Year
  Sex: Male

DRUGS (5)
  1. OPTISULIN (INSULIN GLARGINE) [Suspect]
     Active Substance: INSULIN GLARGINE
     Dosage: BED TIME-22 UNIS (UNSPECIFIED), HS
     Dates: start: 20190620
  2. OPTISULIN (INSULIN GLARGINE) [Suspect]
     Active Substance: INSULIN GLARGINE
     Dosage: 8 U, HS
     Dates: start: 20190620
  3. GLUCOPHAGE [Concomitant]
     Active Substance: METFORMIN HYDROCHLORIDE
     Dosage: 1000 MG, BID (BEFORE SUPPER AND BEFORE BREAKFAST)
     Route: 065
     Dates: start: 20190201
  4. DIAGLUCIDE [Concomitant]
     Active Substance: GLICLAZIDE
     Dosage: 30 MG, BID (BEFORE BREAKFAST AND BEFORE SUPPER)
     Dates: start: 20190201
  5. NO STUDY DRUG GIVEN [Suspect]
     Active Substance: INVESTIGATIONAL PRODUCT
     Dosage: UNK

REACTIONS (5)
  - Constipation [Not Recovered/Not Resolved]
  - Pain in extremity [Not Recovered/Not Resolved]
  - Rash [Not Recovered/Not Resolved]
  - Dry skin [Unknown]
  - Musculoskeletal stiffness [Not Recovered/Not Resolved]
